FAERS Safety Report 20163533 (Version 2)
Quarter: 2021Q4

REPORT INFORMATION
  Report Type: Report from Study
  Country: CH (occurrence: CH)
  Receive Date: 20211209
  Receipt Date: 20211221
  Transmission Date: 20220303
  Serious: Yes (Hospitalization)
  Sender: FDA-Public Use
  Company Number: CH-BRISTOL-MYERS SQUIBB COMPANY-BMS-2021-130881

PATIENT
  Age: 62 Year
  Sex: Female
  Weight: 71.1 kg

DRUGS (2)
  1. NIVOLUMAB [Suspect]
     Active Substance: NIVOLUMAB
     Indication: Metastatic malignant melanoma
     Dosage: 220 MILLIGRAM/KILOGRAM, Q2WK
     Route: 042
     Dates: start: 20211018
  2. TINOSTAMUSTINE [Suspect]
     Active Substance: TINOSTAMUSTINE
     Indication: Metastatic malignant melanoma
     Dosage: 52.8 MILLIGRAM/SQ. METER, Q2WK
     Route: 042
     Dates: start: 20211004

REACTIONS (1)
  - COVID-19 [Recovered/Resolved]

NARRATIVE: CASE EVENT DATE: 20211201
